FAERS Safety Report 8579473-9 (Version None)
Quarter: 2012Q3

REPORT INFORMATION
  Report Type: 
  Country: None (occurrence: None)
  Receive Date: 20120808
  Receipt Date: 20120730
  Transmission Date: 20120928
  Serious: Yes (Other)
  Sender: FDA-Public Use
  Company Number: US-GLAXOSMITHKLINE-A0972195A

PATIENT
  Age: 43 Year
  Sex: Female

DRUGS (6)
  1. AMBIEN [Concomitant]
  2. SYNTHROID [Concomitant]
  3. BIRTH CONTROL [Concomitant]
  4. PAROXETINE [Suspect]
     Indication: DEPRESSION
     Dosage: 25MG PER DAY
     Route: 048
     Dates: start: 20120301, end: 20120331
  5. PAXIL CR [Suspect]
     Indication: DEPRESSION
     Dosage: 25MG PER DAY
     Route: 048
     Dates: start: 20030601
  6. DEXILANT [Concomitant]

REACTIONS (17)
  - NAUSEA [None]
  - NIGHTMARE [None]
  - MALAISE [None]
  - SWOLLEN TONGUE [None]
  - SENSATION OF FOREIGN BODY [None]
  - BALANCE DISORDER [None]
  - MUSCLE TWITCHING [None]
  - DRUG INEFFECTIVE [None]
  - SPEECH DISORDER [None]
  - PRODUCT QUALITY ISSUE [None]
  - MOVEMENT DISORDER [None]
  - TONGUE DISORDER [None]
  - APHASIA [None]
  - INSOMNIA [None]
  - PARAESTHESIA ORAL [None]
  - CONVULSION [None]
  - PANIC ATTACK [None]
